FAERS Safety Report 7159951-X (Version None)
Quarter: 2010Q4

REPORT INFORMATION
  Report Type: 
  Country: None (occurrence: None)
  Receive Date: 20101214
  Receipt Date: 20101208
  Transmission Date: 20110411
  Serious: Yes (Other)
  Sender: FDA-Public Use
  Company Number: US-ABBOTT-10P-163-0672826-00

PATIENT
  Age: 17 Year
  Sex: Female

DRUGS (4)
  1. KALETRA [Suspect]
     Indication: HIV INFECTION
     Dosage: 400/200 MG/DAY
     Route: 048
     Dates: start: 20051110
  2. LAMIVUDINE [Suspect]
     Indication: HIV INFECTION
     Dosage: 300 MG/DAY
     Route: 048
     Dates: start: 20051110
  3. ABACAVIR [Suspect]
     Indication: HIV INFECTION
     Dosage: 600 MG/DAY
     Route: 048
     Dates: start: 20051110
  4. ETRAVIRINE [Suspect]
     Indication: HIV INFECTION
     Dosage: 400 MG/DAY
     Route: 048
     Dates: start: 20100525, end: 20100525

REACTIONS (1)
  - ABORTION INDUCED [None]
